FAERS Safety Report 9867313 (Version 1)
Quarter: 2014Q1

REPORT INFORMATION
  Report Type: Spontaneous
  Country: US (occurrence: US)
  Receive Date: 20140204
  Receipt Date: 20140204
  Transmission Date: 20141002
  Serious: Yes (Other)
  Sender: FDA-Public Use
  Company Number: US-ASTRAZENECA-2014SE06253

PATIENT
  Age: 80 Year
  Sex: Female
  Weight: 68 kg

DRUGS (5)
  1. SYMBICORT [Suspect]
     Indication: ATELECTASIS
     Dosage: 160/4.5 MCG 2 PUFFS BID
     Route: 055
     Dates: start: 2007
  2. SYMBICORT [Suspect]
     Indication: PULMONARY FIBROSIS
     Dosage: 160/4.5 MCG 2 PUFFS BID
     Route: 055
     Dates: start: 2007
  3. MORPHINE [Suspect]
     Route: 065
  4. VITAMIN D [Concomitant]
     Indication: OSTEOPOROSIS
     Route: 048
  5. VITAMIN B12 [Concomitant]
     Indication: OSTEOPOROSIS
     Route: 048

REACTIONS (11)
  - Macular degeneration [Unknown]
  - Cholelithiasis [Unknown]
  - Oxygen saturation decreased [Unknown]
  - Lung disorder [Unknown]
  - Haemorrhagic diathesis [Unknown]
  - Chronic obstructive pulmonary disease [Unknown]
  - Skin fragility [Unknown]
  - Visual acuity reduced [Unknown]
  - Contusion [Unknown]
  - Dyspnoea [Unknown]
  - Intentional drug misuse [Not Recovered/Not Resolved]
